FAERS Safety Report 4632267-9 (Version None)
Quarter: 2005Q2

REPORT INFORMATION
  Report Type: 
  Country: None (occurrence: None)
  Receive Date: 20050401
  Receipt Date: 20040722
  Transmission Date: 20051028
  Serious: Yes (Hospitalization)
  Sender: FDA-Public Use
  Company Number: 04P-163-0268081-00

PATIENT
  Age: 62 Year
  Sex: Female
  Weight: 67.586 kg

DRUGS (6)
  1. DEPAKOTE [Suspect]
     Indication: MOOD SWINGS
     Dosage: 500 MG, 1 IN 1 D, PER ORAL
     Route: 048
     Dates: start: 20040311, end: 20040325
  2. LEVOTHYROXINE SODIUM [Concomitant]
  3. NAPROXEN [Concomitant]
  4. HYDROCHLOROTHIAZIDE [Concomitant]
  5. TELMISARTAN [Concomitant]
  6. CLONAZEPAM [Concomitant]

REACTIONS (6)
  - DYSPNOEA [None]
  - HEPATIC ENZYME INCREASED [None]
  - PAIN [None]
  - PANCREATITIS [None]
  - SWELLING [None]
  - WEIGHT INCREASED [None]
